FAERS Safety Report 18199699 (Version 1)
Quarter: 2020Q3

REPORT INFORMATION
  Report Type: Spontaneous
  Country: FR (occurrence: FR)
  Receive Date: 20200826
  Receipt Date: 20200826
  Transmission Date: 20201103
  Serious: Yes (Life-Threatening)
  Sender: FDA-Public Use
  Company Number: FR-MYLANLABS-2020M1073150

PATIENT
  Age: 1 Day
  Sex: Male
  Weight: 1.98 kg

DRUGS (2)
  1. NALBUPHINE MYLAN 20 MG/ 2ML, SOLUTION INJECTABLE (IV?SC?IM) [Suspect]
     Active Substance: NALBUPHINE
     Indication: PRODUCT USED FOR UNKNOWN INDICATION
     Dosage: UNK
     Route: 042
     Dates: start: 20141124
  2. ALPROSTADIL INTSEL CHIMOS [Suspect]
     Active Substance: ALPROSTADIL
     Indication: CONGENITAL PULMONARY VALVE ATRESIA
     Dosage: 0.01 MICROGRAM, QH
     Route: 042
     Dates: start: 20141120, end: 20141127

REACTIONS (1)
  - Infantile apnoea [Recovered/Resolved]

NARRATIVE: CASE EVENT DATE: 20141120
